FAERS Safety Report 10750859 (Version 1)
Quarter: 2015Q1

REPORT INFORMATION
  Report Type: Spontaneous
  Country: AU (occurrence: AU)
  Receive Date: 20150130
  Receipt Date: 20150130
  Transmission Date: 20150721
  Serious: Yes (Other)
  Sender: FDA-Public Use
  Company Number: AU-MYLANLABS-2015M1001374

PATIENT

DRUGS (2)
  1. MOVOX 100 [Suspect]
     Active Substance: FLUVOXAMINE MALEATE
     Indication: MAJOR DEPRESSION
     Dosage: UNK UNK, BID
  2. COPERIN [Suspect]
     Active Substance: DULOXETINE HYDROCHLORIDE
     Indication: MAJOR DEPRESSION
     Dosage: UNK MG, UNK

REACTIONS (2)
  - Drug ineffective [Unknown]
  - Head discomfort [Recovered/Resolved]
